FAERS Safety Report 17675245 (Version 1)
Quarter: 2020Q2

REPORT INFORMATION
  Report Type: Spontaneous
  Country: US (occurrence: US)
  Receive Date: 20200415
  Receipt Date: 20200415
  Transmission Date: 20200714
  Serious: Yes (Other)
  Sender: FDA-Public Use
  Company Number: None

PATIENT
  Age: 29 Year
  Weight: 171 kg

DRUGS (3)
  1. PREDNISONE. [Suspect]
     Active Substance: PREDNISONE
     Dates: start: 20190920, end: 20191112
  2. CEPHALOSPORIN [Suspect]
     Active Substance: UNSPECIFIED INGREDIENT
  3. CLEAR LIQUID SYRINGES [Suspect]
     Active Substance: UNSPECIFIED INGREDIENT

REACTIONS (23)
  - Dry mouth [None]
  - Joint noise [None]
  - Tinnitus [None]
  - Exaggerated startle response [None]
  - Head discomfort [None]
  - Sensory disturbance [None]
  - Muscle disorder [None]
  - Headache [None]
  - Vaccination site fibrosis [None]
  - Back pain [None]
  - Hypoaesthesia oral [None]
  - Facial paralysis [None]
  - Vaccination complication [None]
  - Neck pain [None]
  - Peripheral coldness [None]
  - Hypotonia [None]
  - Rales [None]
  - Oral pain [None]
  - Food poisoning [None]
  - Hypoaesthesia [None]
  - Musculoskeletal disorder [None]
  - Fatigue [None]
  - Balance disorder [None]
